FAERS Safety Report 5765754-0 (Version None)
Quarter: 2008Q2

REPORT INFORMATION
  Report Type: 
  Country: None (occurrence: None)
  Receive Date: 20080611
  Receipt Date: 20080602
  Transmission Date: 20081010
  Serious: Yes (Hospitalization)
  Sender: FDA-Public Use
  Company Number: US-AMGEN-US276472

PATIENT
  Sex: Female
  Weight: 71.3 kg

DRUGS (7)
  1. ENBREL [Suspect]
     Route: 050
     Dates: start: 20060905
  2. VITAMIN TAB [Concomitant]
     Route: 048
  3. IRON [Concomitant]
     Route: 048
  4. ALBUTEROL [Concomitant]
     Route: 045
  5. TYLENOL [Concomitant]
     Route: 048
  6. MYLANTA [Concomitant]
     Route: 048
  7. INFLUENZA VACCINE [Concomitant]

REACTIONS (2)
  - GASTROENTERITIS VIRAL [None]
  - SINUSITIS [None]
